FAERS Safety Report 4920479-6 (Version None)
Quarter: 2006Q1

REPORT INFORMATION
  Report Type: 
  Country: None (occurrence: None)
  Receive Date: 20060223
  Receipt Date: 20051018
  Transmission Date: 20060701
  Serious: Yes (Hospitalization, Disabling)
  Sender: FDA-Public Use
  Company Number: US-MERCK-0510USA07805

PATIENT
  Age: 76 Year
  Sex: Male
  Weight: 78 kg

DRUGS (16)
  1. VIOXX [Suspect]
     Indication: ARTHRALGIA
     Route: 048
     Dates: start: 20000901, end: 20010301
  2. VIOXX [Suspect]
     Route: 048
  3. VIOXX [Suspect]
     Route: 048
     Dates: start: 20010501
  4. VIOXX [Suspect]
     Route: 048
     Dates: start: 20011001
  5. VIOXX [Suspect]
     Route: 048
     Dates: start: 20020301
  6. VIOXX [Suspect]
     Route: 048
     Dates: start: 20021001, end: 20021201
  7. VIOXX [Suspect]
     Route: 048
     Dates: start: 20030201, end: 20031201
  8. VIOXX [Suspect]
     Route: 048
     Dates: start: 20040101, end: 20040801
  9. VIOXX [Suspect]
     Indication: BACK PAIN
     Route: 048
     Dates: start: 20000901, end: 20010301
  10. VIOXX [Suspect]
     Route: 048
  11. VIOXX [Suspect]
     Route: 048
     Dates: start: 20010501
  12. VIOXX [Suspect]
     Route: 048
     Dates: start: 20011001
  13. VIOXX [Suspect]
     Route: 048
     Dates: start: 20020301
  14. VIOXX [Suspect]
     Route: 048
     Dates: start: 20021001, end: 20021201
  15. VIOXX [Suspect]
     Route: 048
     Dates: start: 20030201, end: 20031201
  16. VIOXX [Suspect]
     Route: 048
     Dates: start: 20040101, end: 20040801

REACTIONS (9)
  - BLADDER DISORDER [None]
  - CARDIOVASCULAR DISORDER [None]
  - CHEST PAIN [None]
  - HYPERTENSION [None]
  - INJURY [None]
  - MYOCARDIAL INFARCTION [None]
  - RENAL FAILURE ACUTE [None]
  - SEPTIC SHOCK [None]
  - TACHYCARDIA [None]
